FAERS Safety Report 8385532 (Version 4)
Quarter: 2015Q3

REPORT INFORMATION
  Report Type: Report from Study
  Country: US (occurrence: US)
  Receive Date: 20120202
  Receipt Date: 20150701
  Transmission Date: 20151125
  Serious: Yes (Death, Hospitalization, Other)
  Sender: FDA-Public Use
  Company Number: US-ROCHE-1035806

PATIENT
  Sex: Male
  Weight: 100 kg

DRUGS (20)
  1. AVASTIN [Suspect]
     Active Substance: BEVACIZUMAB
     Indication: METASTASES TO LIVER
  2. TARCEVA [Suspect]
     Active Substance: ERLOTINIB HYDROCHLORIDE
     Indication: METASTASES TO LIVER
  3. CISPLATIN. [Concomitant]
     Active Substance: CISPLATIN
  4. LORAZEPAM. [Concomitant]
     Active Substance: LORAZEPAM
     Dosage: AS REQUIRED
     Route: 065
  5. TAXOTERE [Concomitant]
     Active Substance: DOCETAXEL
  6. VITAMIN K [Concomitant]
     Active Substance: PHYTONADIONE
  7. SILVER NITRATE. [Concomitant]
     Active Substance: SILVER NITRATE
  8. CIPROFLOXACIN. [Concomitant]
     Active Substance: CIPROFLOXACIN
  9. COMPAZINE [Concomitant]
     Active Substance: PROCHLORPERAZINE MALEATE
     Dosage: AS REQUIRED
     Route: 065
  10. TAXOL [Concomitant]
     Active Substance: PACLITAXEL
  11. NYSTATIN. [Concomitant]
     Active Substance: NYSTATIN
     Indication: FUNGAL SKIN INFECTION
  12. AVASTIN [Suspect]
     Active Substance: BEVACIZUMAB
     Indication: PANCREATIC CARCINOMA
     Route: 042
     Dates: start: 20040513
  13. IRINOTECAN [Concomitant]
     Active Substance: IRINOTECAN
  14. CLEOCIN [Concomitant]
     Active Substance: CLINDAMYCIN PHOSPHATE
     Indication: RASH
     Route: 061
  15. DOCETAXEL. [Concomitant]
     Active Substance: DOCETAXEL
  16. CARDIZEM [Concomitant]
     Active Substance: DILTIAZEM HYDROCHLORIDE
     Route: 065
  17. TARCEVA [Suspect]
     Active Substance: ERLOTINIB HYDROCHLORIDE
     Indication: PANCREATIC CARCINOMA
     Route: 048
     Dates: start: 20050115
  18. TYLENOL [Concomitant]
     Active Substance: ACETAMINOPHEN
  19. GRANISETRON [Concomitant]
     Active Substance: GRANISETRON
     Route: 065
  20. MEGACE [Concomitant]
     Active Substance: MEGESTROL ACETATE
     Route: 065

REACTIONS (32)
  - Anaemia [Unknown]
  - Vomiting [Unknown]
  - Sensory disturbance [Unknown]
  - Dermatitis acneiform [Unknown]
  - Metastatic neoplasm [Fatal]
  - Duodenal ulcer [Recovered/Resolved]
  - Neoplasm progression [Unknown]
  - Neutropenia [Unknown]
  - Eating disorder [Unknown]
  - Muscle spasms [Unknown]
  - Off label use [Unknown]
  - Epistaxis [Recovering/Resolving]
  - Fatigue [Unknown]
  - Disease progression [Unknown]
  - Nausea [Unknown]
  - Excoriation [Unknown]
  - Dyspnoea [Unknown]
  - Diarrhoea [Unknown]
  - Proteinuria [Unknown]
  - Feeling abnormal [Unknown]
  - Headache [Unknown]
  - Ear neoplasm [Unknown]
  - Colonic fistula [Unknown]
  - Pyrexia [Unknown]
  - Flank pain [Unknown]
  - Fungal skin infection [Unknown]
  - Abdominal pain [Unknown]
  - Dyspepsia [Unknown]
  - Abdominal discomfort [Unknown]
  - Musculoskeletal discomfort [Unknown]
  - Orthostatic hypotension [Unknown]
  - Pruritus [Recovering/Resolving]
